FAERS Safety Report 9646334 (Version 2)
Quarter: 2013Q4

REPORT INFORMATION
  Report Type: Spontaneous
  Country: CA (occurrence: CA)
  Receive Date: 20131025
  Receipt Date: 20131120
  Transmission Date: 20140711
  Serious: Yes (Hospitalization, Other)
  Sender: FDA-Public Use
  Company Number: CA-009507513-1310CAN011911

PATIENT
  Age: 54 Year
  Sex: Female
  Weight: 74 kg

DRUGS (12)
  1. VICTRELIS TRIPLE [Suspect]
     Indication: HEPATITIS C
     Dosage: 150 MICROGRAM, QW
     Route: 058
     Dates: start: 20130220
  2. VICTRELIS TRIPLE [Suspect]
     Dosage: 1200 MG, QD
     Route: 048
     Dates: start: 20130220, end: 20130903
  3. VICTRELIS TRIPLE [Suspect]
     Dosage: 2400 MG, QD
     Route: 048
     Dates: start: 20130220, end: 20130903
  4. FENTANYL [Concomitant]
     Indication: PAIN
     Dosage: 100 MICROGRAM, Q3D
     Route: 065
  5. FENTANYL [Concomitant]
     Dosage: 100 MICROGRAM, Q3D
     Route: 062
  6. CRESTOR [Concomitant]
  7. CYMBALTA [Concomitant]
  8. BUSCOPAN [Concomitant]
     Dosage: 20 MG, UNK
     Route: 065
  9. ASPIRIN [Concomitant]
     Dosage: 81 MG, QD
     Route: 048
  10. TEMAZEPAM [Concomitant]
     Dosage: 15 MG, UNK
  11. POTASSIUM (UNSPECIFIED) [Concomitant]
  12. BACLOFEN [Concomitant]
     Dosage: 20 MG, QD
     Route: 048

REACTIONS (8)
  - Rectal haemorrhage [Recovered/Resolved]
  - Rectal ulcer [Unknown]
  - Colostomy [Recovered/Resolved]
  - Surgery [Recovered/Resolved]
  - Intestinal ulcer [Recovered/Resolved]
  - Haemorrhoids [Unknown]
  - Rectal haemorrhage [Unknown]
  - Rectal prolapse [Unknown]
